FAERS Safety Report 15936374 (Version 1)
Quarter: 2019Q1

REPORT INFORMATION
  Report Type: Spontaneous
  Country: US (occurrence: US)
  Receive Date: 20190207
  Receipt Date: 20190207
  Transmission Date: 20190417
  Serious: Yes (Other)
  Sender: FDA-Public Use
  Company Number: None

PATIENT
  Age: 6 Year
  Sex: Female
  Weight: 19.8 kg

DRUGS (1)
  1. OSELTAMIVIR 6 MG/ML SUSP TAMIFLU GENERIC NAME: OLSETAMIVIR PHOSPHATE [Suspect]
     Active Substance: OSELTAMIVIR
     Indication: INFLUENZA A VIRUS TEST POSITIVE
     Dosage: ?          QUANTITY:1.5 TEASPOON(S);?
     Route: 048
     Dates: start: 20190128, end: 20190128

REACTIONS (2)
  - Hallucination [None]
  - Seizure [None]

NARRATIVE: CASE EVENT DATE: 20190129
